FAERS Safety Report 5590879-2 (Version None)
Quarter: 2007Q4

REPORT INFORMATION
  Report Type: 
  Country: None (occurrence: None)
  Receive Date: 20071214
  Receipt Date: 20070308
  Transmission Date: 20080405
  Serious: Yes (Hospitalization, Other)
  Sender: FDA-Public Use
  Company Number: 35063

PATIENT
  Age: 62 Year
  Sex: Male

DRUGS (3)
  1. CISPLATIN [Suspect]
     Indication: SMALL CELL LUNG CANCER STAGE UNSPECIFIED
     Dosage: 158MG/DAY 1/MONTHYLY/IV
     Route: 042
     Dates: start: 20070205, end: 20070305
  2. CISPLATIN [Suspect]
  3. ETOPOSIDE [Suspect]
     Indication: SMALL CELL LUNG CANCER STAGE UNSPECIFIED
     Dosage: 158MG/DAY 1-3/MONTHLY/IV
     Route: 042
     Dates: start: 20070205, end: 20070305

REACTIONS (1)
  - NEUTROPENIA [None]
